FAERS Safety Report 8462663-3 (Version None)
Quarter: 2012Q2

REPORT INFORMATION
  Report Type: 
  Country: None (occurrence: None)
  Receive Date: 20120625
  Receipt Date: 20120621
  Transmission Date: 20120825
  Serious: Yes (Hospitalization)
  Sender: FDA-Public Use
  Company Number: FR-ROCHE-1080859

PATIENT
  Age: 43 Year
  Sex: Male

DRUGS (5)
  1. INCIVO [Concomitant]
     Route: 048
     Dates: start: 20111124, end: 20120223
  2. TRUVADA [Concomitant]
  3. PEGASYS [Suspect]
     Indication: HEPATITIS C
     Route: 058
     Dates: start: 20111124, end: 20120502
  4. COPEGUS [Suspect]
     Indication: HEPATITIS C
     Route: 048
     Dates: start: 20111124, end: 20120502
  5. ISENTRESS [Concomitant]

REACTIONS (1)
  - STOMATITIS [None]
